FAERS Safety Report 7142181-5 (Version None)
Quarter: 2010Q4

REPORT INFORMATION
  Report Type: 
  Country: None (occurrence: None)
  Receive Date: 20101207
  Receipt Date: 20101124
  Transmission Date: 20110411
  Serious: No
  Sender: FDA-Public Use
  Company Number: US-PFIZER INC-2010157366

PATIENT
  Sex: Female

DRUGS (3)
  1. XALATAN [Suspect]
     Dosage: UNK
  2. PILOCARPINE [Suspect]
     Dosage: UNK
  3. AZOPT [Suspect]
     Dosage: UNK

REACTIONS (6)
  - DRUG INEFFECTIVE [None]
  - DYSPNOEA [None]
  - HEADACHE [None]
  - NASAL CONGESTION [None]
  - OROPHARYNGEAL PAIN [None]
  - VISION BLURRED [None]
